APPROVED DRUG PRODUCT: CLAFORAN IN SODIUM CHLORIDE 0.9% IN PLASTIC CONTAINER
Active Ingredient: CEFOTAXIME SODIUM
Strength: EQ 20MG BASE/ML
Dosage Form/Route: INJECTABLE;INJECTION
Application: N050596 | Product #001
Applicant: STERIMAX INC
Approved: May 20, 1985 | RLD: No | RS: No | Type: DISCN